FAERS Safety Report 4874419-9 (Version None)
Quarter: 2006Q1

REPORT INFORMATION
  Report Type: 
  Country: None (occurrence: None)
  Receive Date: 20060104
  Receipt Date: 20051222
  Transmission Date: 20060701
  Serious: Yes (Hospitalization)
  Sender: FDA-Public Use
  Company Number: 2005PV006001

PATIENT
  Age: 65 Year
  Sex: Female
  Weight: 91.6266 kg

DRUGS (5)
  1. BYETTA [Suspect]
     Indication: DIABETES MELLITUS NON-INSULIN-DEPENDENT
     Dosage: 10 MCG; BID; SC; 5 MCG;  BID; SC
     Route: 058
     Dates: start: 20051101, end: 20051213
  2. BYETTA [Suspect]
     Indication: DIABETES MELLITUS NON-INSULIN-DEPENDENT
     Dosage: 10 MCG; BID; SC; 5 MCG;  BID; SC
     Route: 058
     Dates: start: 20051214, end: 20051216
  3. HUMALOG [Concomitant]
  4. LANTUS [Concomitant]
  5. GLIPIZIDE [Concomitant]

REACTIONS (12)
  - BLOOD GLUCOSE INCREASED [None]
  - DIZZINESS [None]
  - DRY MOUTH [None]
  - EARLY SATIETY [None]
  - EPISTAXIS [None]
  - HUNGER [None]
  - KETOACIDOSIS [None]
  - NAUSEA [None]
  - PHOTOPSIA [None]
  - VISION BLURRED [None]
  - VOMITING [None]
  - WEIGHT DECREASED [None]
